FAERS Safety Report 6261219-0 (Version None)
Quarter: 2009Q3

REPORT INFORMATION
  Report Type: 
  Country: None (occurrence: None)
  Receive Date: 20090707
  Receipt Date: 20090622
  Transmission Date: 20100115
  Serious: Yes (Life-Threatening, Hospitalization)
  Sender: FDA-Public Use
  Company Number: 2009EM000141

PATIENT
  Sex: Female

DRUGS (1)
  1. NAGLAZYME [Suspect]
     Indication: MUCOPOLYSACCHARIDOSIS VI
     Dosage: IVDRP
     Route: 041

REACTIONS (5)
  - COMA [None]
  - HYPOXIA [None]
  - INFLUENZA [None]
  - OBSTRUCTIVE AIRWAYS DISORDER [None]
  - PULMONARY FUNCTION TEST DECREASED [None]
